FAERS Safety Report 26045581 (Version 1)
Quarter: 2025Q4

REPORT INFORMATION
  Report Type: Spontaneous
  Country: EU (occurrence: EU)
  Receive Date: 20251114
  Receipt Date: 20251114
  Transmission Date: 20260117
  Serious: Yes (Other)
  Sender: CHATTEM
  Company Number: EU-OPELLA-2025OHG032474

PATIENT
  Sex: Female

DRUGS (1)
  1. FEXOFENADINE [Suspect]
     Active Substance: FEXOFENADINE HYDROCHLORIDE
     Indication: Dermatitis allergic

REACTIONS (12)
  - Anxiety [Unknown]
  - Panic attack [Unknown]
  - Tremor [Unknown]
  - Myalgia [Unknown]
  - Dyspnoea [Unknown]
  - Heart rate increased [Unknown]
  - Sleep disorder [Unknown]
  - Pruritus [Unknown]
  - Fatigue [Unknown]
  - Dizziness [Unknown]
  - Paranoia [Unknown]
  - Insomnia [Unknown]
